FAERS Safety Report 6033273-2 (Version None)
Quarter: 2009Q1

REPORT INFORMATION
  Report Type: 
  Country: None (occurrence: None)
  Receive Date: 20090105
  Receipt Date: 20080527
  Transmission Date: 20090719
  Serious: Yes (Other)
  Sender: FDA-Public Use
  Company Number: US-001082

PATIENT
  Sex: Male

DRUGS (1)
  1. MULTIHANCE [Suspect]
     Indication: NUCLEAR MAGNETIC RESONANCE IMAGING
     Dosage: INTRAVENOUS
     Route: 042
     Dates: start: 20071009, end: 20071009

REACTIONS (1)
  - ANAPHYLACTOID REACTION [None]
